FAERS Safety Report 6506148-X (Version None)
Quarter: 2009Q4

REPORT INFORMATION
  Report Type: 
  Country: None (occurrence: None)
  Receive Date: 20091218
  Receipt Date: 20091208
  Transmission Date: 20100525
  Serious: Yes (Other)
  Sender: FDA-Public Use
  Company Number: US-PFIZER INC-2009292598

PATIENT
  Sex: Female
  Weight: 79.365 kg

DRUGS (3)
  1. GEODON [Suspect]
     Indication: SCHIZOAFFECTIVE DISORDER
     Dosage: 60 MG, 2X/DAY
     Route: 048
     Dates: start: 20091015, end: 20091106
  2. LAMICTAL [Concomitant]
  3. SEROQUEL [Concomitant]

REACTIONS (3)
  - ANGLE CLOSURE GLAUCOMA [None]
  - CHEST PAIN [None]
  - HEART RATE INCREASED [None]
